FAERS Safety Report 17509725 (Version 1)
Quarter: 2020Q1

REPORT INFORMATION
  Report Type: Spontaneous
  Country: US (occurrence: US)
  Receive Date: 20200226
  Receipt Date: 20200226
  Transmission Date: 20200409
  Serious: Yes (Life-Threatening, Hospitalization, Other)
  Sender: FDA-Public Use
  Company Number: None

PATIENT
  Age: 46 Year
  Sex: Female
  Weight: 110.9 kg

DRUGS (2)
  1. NIVOLUMAB [Concomitant]
     Active Substance: NIVOLUMAB
  2. ALDESLEUKIN (IL-2)22 MILLION UNITS/VITAL [Suspect]
     Active Substance: ALDESLEUKIN
     Indication: METASTATIC RENAL CELL CARCINOMA
     Dosage: ?          OTHER DOSE:66 MILLION UNITS;?
     Route: 042
     Dates: start: 20200217, end: 20200219

REACTIONS (9)
  - Acute kidney injury [None]
  - Cerebrovascular accident [None]
  - Haemoglobin decreased [None]
  - Metabolic acidosis [None]
  - Depressed level of consciousness [None]
  - Blepharospasm [None]
  - Hypoglycaemia [None]
  - Acute hepatic failure [None]
  - Pleural effusion [None]

NARRATIVE: CASE EVENT DATE: 20200219
